FAERS Safety Report 8545058-3 (Version None)
Quarter: 2012Q3

REPORT INFORMATION
  Report Type: 
  Country: None (occurrence: None)
  Receive Date: 20120727
  Receipt Date: 20040903
  Transmission Date: 20120928
  Serious: Yes (Hospitalization)
  Sender: FDA-Public Use
  Company Number: US-ROCHE-1092191

PATIENT
  Sex: Female

DRUGS (1)
  1. XOLAIR [Suspect]
     Indication: ASTHMA

REACTIONS (7)
  - CHEST DISCOMFORT [None]
  - MALAISE [None]
  - WHEEZING [None]
  - DYSPNOEA [None]
  - RADIOTHERAPY [None]
  - COUGH [None]
  - SPUTUM ABNORMAL [None]
